FAERS Safety Report 9498404 (Version 2)
Quarter: 2013Q3

REPORT INFORMATION
  Report Type: Spontaneous
  Country: FI (occurrence: FI)
  Receive Date: 20130904
  Receipt Date: 20130917
  Transmission Date: 20140515
  Serious: Yes (Disabling)
  Sender: FDA-Public Use
  Company Number: FI-GLAXOSMITHKLINE-B0920302A

PATIENT
  Age: 35 Year
  Sex: Female
  Weight: 48 kg

DRUGS (4)
  1. BENLYSTA [Suspect]
     Indication: SYSTEMIC LUPUS ERYTHEMATOSUS
     Route: 042
     Dates: start: 20121214, end: 20130724
  2. MYCOPHENOLATE MOFETIL [Concomitant]
     Indication: SYSTEMIC LUPUS ERYTHEMATOSUS
     Route: 048
     Dates: start: 20130314
  3. OXIKLORIN [Concomitant]
     Indication: SYSTEMIC LUPUS ERYTHEMATOSUS
     Route: 048
     Dates: start: 20120927
  4. MEDROL [Concomitant]
     Indication: SYSTEMIC LUPUS ERYTHEMATOSUS
     Dosage: 16MG PER DAY
     Route: 048
     Dates: start: 20120724

REACTIONS (13)
  - Hemiplegia [Unknown]
  - Hemiparesis [Unknown]
  - Cerebral ischaemia [Unknown]
  - Infarction [Unknown]
  - Ischaemic stroke [Unknown]
  - Cerebral artery occlusion [Unknown]
  - Hypotonia [Unknown]
  - Arthropathy [Unknown]
  - Speech disorder [Unknown]
  - Aphasia [Unknown]
  - Facial paresis [Unknown]
  - Activities of daily living impaired [Unknown]
  - Bedridden [Unknown]
